FAERS Safety Report 11381180 (Version 6)
Quarter: 2017Q1

REPORT INFORMATION
  Report Type: Report from Study
  Country: US (occurrence: US)
  Receive Date: 20150814
  Receipt Date: 20170127
  Transmission Date: 20170428
  Serious: Yes (Hospitalization)
  Sender: FDA-Public Use
  Company Number: US-OTSUKA-2015_007299

PATIENT
  Age: 35 Year
  Sex: Male

DRUGS (1)
  1. ARIPIPRAZOLE. [Suspect]
     Active Substance: ARIPIPRAZOLE
     Indication: PRODUCT USED FOR UNKNOWN INDICATION
     Dosage: 400 MG, QM
     Route: 065

REACTIONS (4)
  - Delusion [Recovering/Resolving]
  - Drug ineffective [Unknown]
  - Drug dose omission [Unknown]
  - Psychiatric symptom [Recovering/Resolving]

NARRATIVE: CASE EVENT DATE: 2015
